FAERS Safety Report 6731370-7 (Version None)
Quarter: 2010Q2

REPORT INFORMATION
  Report Type: 
  Country: None (occurrence: None)
  Receive Date: 20100517
  Receipt Date: 20100517
  Transmission Date: 20101027
  Serious: Yes (Hospitalization)
  Sender: FDA-Public Use
  Company Number: None

PATIENT
  Age: 72 Year
  Sex: Male
  Weight: 95 kg

DRUGS (2)
  1. VIBATIV [Suspect]
     Indication: CELLULITIS
     Dosage: 950 MG EVERY 24 HOURS IV
     Route: 042
     Dates: start: 20100424, end: 20100503
  2. VIBATIV [Suspect]
     Indication: STAPHYLOCOCCAL INFECTION
     Dosage: 950 MG EVERY 24 HOURS IV
     Route: 042
     Dates: start: 20100424, end: 20100503

REACTIONS (13)
  - ACUTE RESPIRATORY DISTRESS SYNDROME [None]
  - ASTHENIA [None]
  - BALANCE DISORDER [None]
  - DIZZINESS [None]
  - DYSSTASIA [None]
  - FALL [None]
  - FATIGUE [None]
  - INTERNATIONAL NORMALISED RATIO INCREASED [None]
  - LETHARGY [None]
  - RENAL FAILURE ACUTE [None]
  - THROMBOCYTOPENIA [None]
  - UNEVALUABLE EVENT [None]
  - URINE ANALYSIS ABNORMAL [None]
